FAERS Safety Report 25424747 (Version 2)
Quarter: 2025Q2

REPORT INFORMATION
  Report Type: Spontaneous
  Country: US (occurrence: US)
  Receive Date: 20250611
  Receipt Date: 20250620
  Transmission Date: 20250717
  Serious: Yes (Hospitalization)
  Sender: BRISTOL-MYERS SQUIBB COMPANY
  Company Number: US-BRISTOL-MYERS SQUIBB COMPANY-2025-082744

PATIENT
  Age: 83 Year
  Sex: Male

DRUGS (1)
  1. POMALYST [Suspect]
     Active Substance: POMALIDOMIDE
     Indication: Plasma cell myeloma
     Dosage: ONCE DAILY/ TAKE 1 CAPSULE BY MOUTH 1 TIME A DAY IN THE MORNING BEFORE BREAKFAST FOR 21 DAYS ON THEN
     Route: 048
     Dates: start: 202308

REACTIONS (1)
  - Hospitalisation [Unknown]
